FAERS Safety Report 10993225 (Version 1)
Quarter: 2015Q2

REPORT INFORMATION
  Report Type: Spontaneous
  Country: US (occurrence: US)
  Receive Date: 20150407
  Receipt Date: 20150407
  Transmission Date: 20150821
  Serious: Yes (Other)
  Sender: FDA-Public Use
  Company Number: US-BEH-2015050061

PATIENT
  Age: 15 Year
  Sex: Male

DRUGS (1)
  1. SUCROSE-CONTAINING INTRAVENOUS IMMUNOGLOBULIN [Suspect]
     Active Substance: HUMAN IMMUNOGLOBULIN G
     Indication: CHEDIAK-HIGASHI SYNDROME

REACTIONS (5)
  - Renal failure [Unknown]
  - Status epilepticus [Unknown]
  - Drug ineffective [Unknown]
  - Posterior reversible encephalopathy syndrome [Unknown]
  - Hypertension [Unknown]
